FAERS Safety Report 23153012 (Version 1)
Quarter: 2023Q4

REPORT INFORMATION
  Report Type: Other
  Country: None (occurrence: RS)
  Receive Date: 20231107
  Receipt Date: 20231107
  Transmission Date: 20240110
  Serious: Yes (Life-Threatening, Hospitalization)
  Sender: FDA-Public Use
  Company Number: RS-B.Braun Medical Inc.-2147890

PATIENT
  Age: 32 Year
  Sex: Female

DRUGS (4)
  1. HEPARIN SODIUM IN DEXTROSE [Suspect]
     Active Substance: HEPARIN SODIUM
     Indication: Percutaneous coronary intervention
  2. ASPIRIN [Suspect]
     Active Substance: ASPIRIN
  3. TICAGRELOR [Suspect]
     Active Substance: TICAGRELOR
  4. Inotropic drugs [Concomitant]

REACTIONS (2)
  - Drug ineffective [None]
  - Maternal exposure during pregnancy [None]
